FAERS Safety Report 12819514 (Version 1)
Quarter: 2016Q4

REPORT INFORMATION
  Report Type: Report from Study
  Country: BR (occurrence: BR)
  Receive Date: 20161006
  Receipt Date: 20161006
  Transmission Date: 20170207
  Serious: Yes (Other)
  Sender: FDA-Public Use
  Company Number: BR-JNJFOC-20161002411

PATIENT

DRUGS (8)
  1. OXCARBAZEPINE. [Suspect]
     Active Substance: OXCARBAZEPINE
     Indication: TEMPORAL LOBE EPILEPSY
     Route: 065
  2. PHENOBARBITAL. [Suspect]
     Active Substance: PHENOBARBITAL
     Indication: TEMPORAL LOBE EPILEPSY
     Route: 065
  3. HALOPERIDOL. [Suspect]
     Active Substance: HALOPERIDOL
     Indication: PSYCHOTIC DISORDER
     Route: 065
  4. FLUOXETINE [Suspect]
     Active Substance: FLUOXETINE HYDROCHLORIDE
     Indication: TEMPORAL LOBE EPILEPSY
     Route: 065
  5. CARBAMAZEPINE. [Suspect]
     Active Substance: CARBAMAZEPINE
     Indication: TEMPORAL LOBE EPILEPSY
     Route: 065
  6. HALOPERIDOL. [Suspect]
     Active Substance: HALOPERIDOL
     Indication: TEMPORAL LOBE EPILEPSY
     Route: 065
  7. FLUOXETINE [Suspect]
     Active Substance: FLUOXETINE HYDROCHLORIDE
     Indication: MAJOR DEPRESSION
     Route: 065
  8. PHENYTOIN. [Suspect]
     Active Substance: PHENYTOIN
     Indication: TEMPORAL LOBE EPILEPSY
     Route: 065

REACTIONS (1)
  - Neurodegenerative disorder [Unknown]
